FAERS Safety Report 5972634-4 (Version None)
Quarter: 2008Q4

REPORT INFORMATION
  Report Type: 
  Country: None (occurrence: None)
  Receive Date: 20081125
  Receipt Date: 20081114
  Transmission Date: 20090506
  Serious: Yes (Disabling)
  Sender: FDA-Public Use
  Company Number: JP-1167838

PATIENT
  Age: 72 Year
  Sex: Female

DRUGS (2)
  1. TRAVATAN [Suspect]
     Indication: GLAUCOMA
     Dosage: 1 GTT OD QD
     Route: 047
     Dates: start: 20080910, end: 20081030
  2. FLUOROMETHOLONE (FLUOROMETHOLONE) [Concomitant]

REACTIONS (2)
  - EYE PAIN [None]
  - MYCOTIC CORNEAL ULCER [None]
